FAERS Safety Report 6095824-1 (Version None)
Quarter: 2009Q1

REPORT INFORMATION
  Report Type: 
  Country: None (occurrence: None)
  Receive Date: 20090227
  Receipt Date: 20080715
  Transmission Date: 20090719
  Serious: Yes (Hospitalization, Other)
  Sender: FDA-Public Use
  Company Number: A0734156A

PATIENT
  Age: 37 Year
  Sex: Female

DRUGS (3)
  1. LAMICTAL [Suspect]
     Route: 048
     Dates: start: 20070801, end: 20080520
  2. CONCERTA [Concomitant]
  3. LUVOX [Concomitant]

REACTIONS (6)
  - APLASTIC ANAEMIA [None]
  - ASTHENIA [None]
  - CHEST PAIN [None]
  - DRUG INEFFECTIVE [None]
  - DYSPNOEA [None]
  - OVERDOSE [None]
